FAERS Safety Report 9349080 (Version 1)
Quarter: 2013Q2

REPORT INFORMATION
  Report Type: Spontaneous
  Country: BR (occurrence: BR)
  Receive Date: 20130614
  Receipt Date: 20130614
  Transmission Date: 20140414
  Serious: Yes (Other)
  Sender: FDA-Public Use
  Company Number: BR-PFIZER INC-2013178006

PATIENT
  Age: 59 Year
  Sex: Female
  Weight: 54 kg

DRUGS (4)
  1. FRONTAL [Suspect]
     Dosage: ONE TABLET OF 1 MG, 2X/DAY
     Route: 048
     Dates: start: 2007
  2. CRESTOR [Concomitant]
     Indication: BLOOD CHOLESTEROL INCREASED
     Dosage: 1 TABLET DAILY
  3. FLUOXETINE [Concomitant]
     Indication: DEPRESSION
     Dosage: 1 TABLET DAILY
     Dates: start: 201304
  4. SANDRENA GEL [Concomitant]
     Indication: HORMONE REPLACEMENT THERAPY
     Dosage: 1 SACHET AT NIGHT
     Dates: start: 2005

REACTIONS (4)
  - Meniscus injury [Unknown]
  - Inflammation [Unknown]
  - Meniscal degeneration [Unknown]
  - Inflammation [Unknown]
